FAERS Safety Report 7279973-8 (Version None)
Quarter: 2011Q1

REPORT INFORMATION
  Report Type: 
  Country: None (occurrence: None)
  Receive Date: 20110203
  Receipt Date: 20110203
  Transmission Date: 20110831
  Serious: Yes (Hospitalization)
  Sender: FDA-Public Use
  Company Number: None

PATIENT
  Age: 64 Year
  Sex: Male
  Weight: 102 kg

DRUGS (1)
  1. DILTIAZEM [Suspect]
     Dosage: 120 MG EVERY DAY PO
     Route: 048
     Dates: start: 20110119, end: 20110124

REACTIONS (2)
  - PRODUCT SUBSTITUTION ISSUE [None]
  - ANGIOEDEMA [None]
